FAERS Safety Report 19868743 (Version 2)
Quarter: 2021Q4

REPORT INFORMATION
  Report Type: Report from Study
  Country: US (occurrence: US)
  Receive Date: 20210921
  Receipt Date: 20211228
  Transmission Date: 20220304
  Serious: Yes (Hospitalization, Other)
  Sender: FDA-Public Use
  Company Number: US-ABBVIE-21K-163-4087288-00

PATIENT
  Age: 68 Year
  Sex: Female
  Weight: 47.670 kg

DRUGS (14)
  1. VENCLEXTA [Suspect]
     Active Substance: VENETOCLAX
     Indication: Acute myeloid leukaemia
     Route: 048
     Dates: start: 20210907, end: 20210915
  2. ACYCLOVIR [Concomitant]
     Active Substance: ACYCLOVIR
     Indication: Product used for unknown indication
  3. AZACITIDINE [Concomitant]
     Active Substance: AZACITIDINE
     Indication: Product used for unknown indication
  4. KEFLEX [Concomitant]
     Active Substance: CEPHALEXIN
     Indication: Product used for unknown indication
  5. METOPROLOL TARTRATE [Concomitant]
     Active Substance: METOPROLOL TARTRATE
     Indication: Product used for unknown indication
  6. ONDANSETRON HCL [Concomitant]
     Active Substance: ONDANSETRON HYDROCHLORIDE
     Indication: Product used for unknown indication
  7. CEFUROXIME [Concomitant]
     Active Substance: CEFUROXIME
     Indication: Product used for unknown indication
     Dosage: 1 TABLET BY MOUTH EVERY 12 HOURS
  8. VORICONAZOLE [Concomitant]
     Active Substance: VORICONAZOLE
     Indication: Product used for unknown indication
     Dosage: 1 TABLET BY MOUTH EVERY 12 HRS
  9. NYSTATIN [Concomitant]
     Active Substance: NYSTATIN
     Indication: Product used for unknown indication
     Dosage: 100000 UNIT/ML, TAKE 2 ML 4 TIMES DAILY
  10. CHLORHEXIDINE [Concomitant]
     Active Substance: CHLORHEXIDINE
     Indication: Product used for unknown indication
     Dosage: RINSE TWICE A DAY
  11. PEPCID [Concomitant]
     Active Substance: FAMOTIDINE
     Indication: Flatulence
  12. BENADRYL [Concomitant]
     Active Substance: DIPHENHYDRAMINE HYDROCHLORIDE
     Indication: Pruritus
  13. TYLENOL [Concomitant]
     Active Substance: ACETAMINOPHEN
     Indication: Headache
  14. MYLANTA [Concomitant]
     Active Substance: ALUMINUM HYDROXIDE\DIMETHICONE\MAGNESIUM HYDROXIDE
     Indication: Constipation

REACTIONS (27)
  - Dysphagia [Recovered/Resolved]
  - Heart rate increased [Recovered/Resolved]
  - Blood pressure increased [Recovered/Resolved]
  - Febrile neutropenia [Unknown]
  - Blood pressure increased [Recovered/Resolved]
  - Heart rate increased [Not Recovered/Not Resolved]
  - Haemoglobin decreased [Unknown]
  - Burning sensation [Unknown]
  - Abdominal discomfort [Unknown]
  - Dyspepsia [Unknown]
  - Epigastric discomfort [Unknown]
  - Anxiety [Unknown]
  - Tension [Unknown]
  - Head discomfort [Unknown]
  - Poor quality sleep [Unknown]
  - Pruritus [Unknown]
  - Dysphonia [Unknown]
  - Ear pain [Unknown]
  - Muscular weakness [Unknown]
  - Chills [Unknown]
  - Asthenia [Unknown]
  - Dry mouth [Unknown]
  - Dizziness [Unknown]
  - Depressed mood [Unknown]
  - Somnolence [Unknown]
  - Neutropenia [Unknown]
  - Odynophagia [Unknown]

NARRATIVE: CASE EVENT DATE: 20210909
